FAERS Safety Report 6967264-1 (Version None)
Quarter: 2010Q3

REPORT INFORMATION
  Report Type: 
  Country: None (occurrence: None)
  Receive Date: 20100901
  Receipt Date: 19540812
  Transmission Date: 20110219
  Serious: Yes (Other)
  Sender: FDA-Public Use
  Company Number: THQ2010A01567

PATIENT
  Age: 55 Year
  Sex: Male

DRUGS (2)
  1. PIOGLITAZONE HCL [Suspect]
     Indication: TYPE 2 DIABETES MELLITUS
     Dosage: PER ORAL
     Route: 048
     Dates: start: 20090513
  2. H80-MC-GWCH PH III LAR MONO (EXENATIDE LONG ACTING RELEASE 2 MG)(ANTI- [Suspect]
     Indication: TYPE 2 DIABETES MELLITUS
     Dosage: 2 MCG (2 MCG, 1 IN 1 WK)  INJECTION
     Dates: start: 20090512

REACTIONS (15)
  - ABNORMAL FAECES [None]
  - ANAEMIA [None]
  - EROSIVE OESOPHAGITIS [None]
  - GASTRITIS [None]
  - GASTROINTESTINAL HAEMORRHAGE [None]
  - HEPATOMEGALY [None]
  - HIV INFECTION [None]
  - HYPERGAMMAGLOBULINAEMIA [None]
  - HYPOALBUMINAEMIA [None]
  - LYMPHADENOPATHY [None]
  - LYMPHOMA [None]
  - MONOCLONAL GAMMOPATHY [None]
  - PERICARDIAL DISEASE [None]
  - RED BLOOD CELL SEDIMENTATION RATE INCREASED [None]
  - SERUM FERRITIN INCREASED [None]
